FAERS Safety Report 12618289 (Version 2)
Quarter: 2017Q4

REPORT INFORMATION
  Report Type: Report from Study
  Country: US (occurrence: US)
  Receive Date: 20160803
  Receipt Date: 20171113
  Transmission Date: 20180320
  Serious: Yes (Hospitalization, Other)
  Sender: FDA-Public Use
  Company Number: US-BRISTOL-MYERS SQUIBB COMPANY-BMS-2016-062198

PATIENT
  Age: 72 Year
  Sex: Female
  Weight: 69 kg

DRUGS (8)
  1. PANTOPRAZOLE [Concomitant]
     Active Substance: PANTOPRAZOLE
     Indication: PRODUCT USED FOR UNKNOWN INDICATION
     Route: 065
  2. NIVOLUMAB [Suspect]
     Active Substance: NIVOLUMAB
     Indication: NON-SMALL CELL LUNG CANCER
     Dosage: 207 MG, UNK
     Route: 042
     Dates: start: 20160616, end: 20160616
  3. NORCO [Concomitant]
     Active Substance: ACETAMINOPHEN\HYDROCODONE BITARTRATE
     Indication: PRODUCT USED FOR UNKNOWN INDICATION
     Route: 065
  4. MEDROL [Concomitant]
     Active Substance: METHYLPREDNISOLONE
     Indication: PRODUCT USED FOR UNKNOWN INDICATION
     Route: 065
  5. OXAPROZIN. [Concomitant]
     Active Substance: OXAPROZIN
     Indication: PRODUCT USED FOR UNKNOWN INDICATION
     Route: 065
  6. PREDNISONE. [Concomitant]
     Active Substance: PREDNISONE
     Indication: PRODUCT USED FOR UNKNOWN INDICATION
     Route: 065
  7. PROCHLORPERAZINE. [Concomitant]
     Active Substance: PROCHLORPERAZINE
     Indication: PRODUCT USED FOR UNKNOWN INDICATION
     Route: 065
  8. IPILIMUMAB [Suspect]
     Active Substance: IPILIMUMAB
     Indication: NON-SMALL CELL LUNG CANCER
     Dosage: 69 MG, UNK
     Route: 042
     Dates: start: 20160616, end: 20160616

REACTIONS (10)
  - Hyponatraemia [Recovered/Resolved]
  - Pleural effusion [Not Recovered/Not Resolved]
  - Pneumonitis [Recovered/Resolved]
  - Anaemia [Recovering/Resolving]
  - Haemoptysis [Recovered/Resolved]
  - Hypoalbuminaemia [Unknown]
  - Supraventricular tachycardia [Recovered/Resolved]
  - Hypoxia [Recovered/Resolved]
  - Oesophageal haemorrhage [Recovering/Resolving]
  - Dyspnoea [Recovered/Resolved]

NARRATIVE: CASE EVENT DATE: 20160620
